FAERS Safety Report 7124921-4 (Version None)
Quarter: 2010Q4

REPORT INFORMATION
  Report Type: 
  Country: None (occurrence: None)
  Receive Date: 20101123
  Receipt Date: 20101123
  Transmission Date: 20110411
  Serious: Yes (Hospitalization)
  Sender: FDA-Public Use
  Company Number: None

PATIENT
  Age: 80 Year
  Sex: Male
  Weight: 48 kg

DRUGS (1)
  1. INSULIN [Suspect]
     Dosage: 6 UNITS ONCE SQ
     Route: 058
     Dates: start: 20101116, end: 20101117

REACTIONS (1)
  - HYPOGLYCAEMIA [None]
